FAERS Safety Report 6637072-X (Version None)
Quarter: 2010Q1

REPORT INFORMATION
  Report Type: 
  Country: None (occurrence: None)
  Receive Date: 20100316
  Receipt Date: 20100225
  Transmission Date: 20100710
  Serious: Yes (Life-Threatening, Hospitalization)
  Sender: FDA-Public Use
  Company Number: US-WYE-H12642109

PATIENT
  Sex: Female
  Weight: 86.26 kg

DRUGS (6)
  1. EFFEXOR XR [Suspect]
     Indication: MAJOR DEPRESSION
     Dosage: 150 MG ONCE DAILY FROM UNKNOWN DATE TO NOV-2009, THEN WAS 225 MG FROM NOV-2009
     Route: 048
  2. EFFEXOR XR [Suspect]
     Indication: SCHIZOAFFECTIVE DISORDER
  3. LORAZEPAM [Concomitant]
     Dosage: 0.5 MG THREE TIMES DAILY AS NEEDED
  4. GEODON [Suspect]
     Indication: PARANOIA
     Dosage: 40 MG EVERY MORNING, 80 MG EVERY NIGHT
     Dates: start: 20090101, end: 20090101
  5. GEODON [Suspect]
     Indication: SCHIZOAFFECTIVE DISORDER
     Dates: start: 20091111, end: 20090101
  6. GEODON [Suspect]
     Dosage: 40 MG EVERY MORNING, 80 MG EVERY NIGHT
     Dates: start: 20090101

REACTIONS (6)
  - CONDITION AGGRAVATED [None]
  - MENTAL DISORDER [None]
  - PARANOIA [None]
  - POISONING DELIBERATE [None]
  - SUICIDAL BEHAVIOUR [None]
  - SUICIDE ATTEMPT [None]
